FAERS Safety Report 9496207 (Version 1)
Quarter: 2013Q3

REPORT INFORMATION
  Report Type: Spontaneous
  Country: KW (occurrence: None)
  Receive Date: 20130829
  Receipt Date: 20130829
  Transmission Date: 20140515
  Serious: Yes (Other)
  Sender: FDA-Public Use
  Company Number: INT_00287_2013

PATIENT
  Age: 45 Year
  Sex: Male

DRUGS (5)
  1. MEROPENEM [Suspect]
     Indication: PNEUMONIA
     Dosage: (DF)
  2. DRUGS USED IN DIABETES [Concomitant]
  3. ANTIHYPERTENSIVES [Concomitant]
  4. CARDIAC THERAPY [Concomitant]
  5. TREATMENT FOR RENAL PROBLEMS [Concomitant]

REACTIONS (1)
  - Acute generalised exanthematous pustulosis [None]
